FAERS Safety Report 5678692-9 (Version None)
Quarter: 2008Q1

REPORT INFORMATION
  Report Type: 
  Country: None (occurrence: None)
  Receive Date: 20080321
  Receipt Date: 20080314
  Transmission Date: 20080703
  Serious: Yes (Hospitalization)
  Sender: FDA-Public Use
  Company Number: 16355

PATIENT
  Age: 45 Year
  Sex: Male
  Weight: 93.441 kg

DRUGS (10)
  1. NIPENT [Suspect]
     Indication: CHRONIC LYMPHOCYTIC LEUKAEMIA
     Dosage: 8.5 MG Q3W IV
     Route: 042
     Dates: start: 20070226
  2. CYTOXAN [Suspect]
     Indication: CHRONIC LYMPHOCYTIC LEUKAEMIA
     Dosage: 1280 MG Q3W IV
     Route: 042
     Dates: start: 20070226
  3. RITUXAN [Suspect]
     Indication: CHRONIC LYMPHOCYTIC LEUKAEMIA
     Dosage: 800 MG Q3W IV
     Route: 042
     Dates: start: 20070305
  4. MEPRON [Concomitant]
  5. ALLOPURINOL [Concomitant]
  6. ACYCLOVIR [Concomitant]
  7. COUMADIN. MFR: NOT SPECIFIED [Concomitant]
  8. L-LYSINE [Concomitant]
  9. NEBUPENT [Concomitant]
  10. ZOVIRAX /00587301/. MFR: NOT SPECIFIED [Concomitant]

REACTIONS (7)
  - ABDOMINAL PAIN LOWER [None]
  - BONE MARROW FAILURE [None]
  - DIVERTICULITIS [None]
  - HEPATIC CYST [None]
  - HYPERCOAGULATION [None]
  - IMMUNOSUPPRESSION [None]
  - PYURIA [None]
